FAERS Safety Report 6544111-3 (Version None)
Quarter: 2010Q1

REPORT INFORMATION
  Report Type: 
  Country: None (occurrence: None)
  Receive Date: 20100119
  Receipt Date: 20100119
  Transmission Date: 20100710
  Serious: Yes (Hospitalization, Other)
  Sender: FDA-Public Use
  Company Number: None

PATIENT
  Sex: Male
  Weight: 79.3795 kg

DRUGS (2)
  1. PRISTIQ [Suspect]
     Indication: ANXIETY
     Dosage: 1 EVERY OTHER DAY PO
     Route: 048
     Dates: start: 20090901, end: 20091021
  2. PRISTIQ [Suspect]
     Indication: DEPRESSION
     Dosage: 1 EVERY OTHER DAY PO
     Route: 048
     Dates: start: 20090901, end: 20091021

REACTIONS (4)
  - CHEST DISCOMFORT [None]
  - CHEST PAIN [None]
  - DYSPNOEA [None]
  - PALPITATIONS [None]
